FAERS Safety Report 11225130 (Version 1)
Quarter: 2015Q2

REPORT INFORMATION
  Report Type: Spontaneous
  Country: US (occurrence: US)
  Receive Date: 20150629
  Receipt Date: 20150629
  Transmission Date: 20150821
  Serious: Yes (Hospitalization, Other)
  Sender: FDA-Public Use
  Company Number: US-PFIZER INC-2015211363

PATIENT
  Age: 41 Year
  Sex: Male
  Weight: 68 kg

DRUGS (4)
  1. LYRICA [Suspect]
     Active Substance: PREGABALIN
     Indication: FEELING HOT
     Dosage: 100 MG (50 MG 2 CAPSULES), DAILY
     Route: 048
  2. METOPROLOL [Concomitant]
     Active Substance: METOPROLOL
     Indication: BLOOD PRESSURE ABNORMAL
     Dosage: 25 MG, UNK
  3. ZOLPIDEM [Concomitant]
     Active Substance: ZOLPIDEM\ZOLPIDEM TARTRATE
     Indication: SLEEP DISORDER
     Dosage: 10 MG, UNK
  4. ATORVASTATIN [Concomitant]
     Active Substance: ATORVASTATIN
     Indication: BLOOD CHOLESTEROL ABNORMAL
     Dosage: 40 MG, UNK

REACTIONS (11)
  - Headache [Unknown]
  - Vision blurred [Unknown]
  - Nausea [Unknown]
  - Muscle twitching [Unknown]
  - Eye disorder [Unknown]
  - Vomiting [Unknown]
  - Dizziness [Unknown]
  - Gastric disorder [Unknown]
  - Cerebrovascular accident [Unknown]
  - Hemiplegia [Unknown]
  - Cerebral palsy [Unknown]

NARRATIVE: CASE EVENT DATE: 20150516
